FAERS Safety Report 10013695 (Version 1)
Quarter: 2014Q1

REPORT INFORMATION
  Report Type: Spontaneous
  Country: US (occurrence: US)
  Receive Date: 20140316
  Receipt Date: 20140316
  Transmission Date: 20141002
  Serious: No
  Sender: FDA-Public Use
  Company Number: US-009507513-1403USA000174

PATIENT
  Age: 19 Year
  Sex: Female

DRUGS (1)
  1. IMPLANON [Suspect]
     Indication: CONTRACEPTION
     Dosage: ETONOGESTREL IMPLANT, LEFT ARM
     Route: 059
     Dates: start: 20110309

REACTIONS (2)
  - Device difficult to use [Unknown]
  - Medical device complication [Not Recovered/Not Resolved]
